FAERS Safety Report 8796716 (Version 1)
Quarter: 2012Q4

REPORT INFORMATION
  Report Type: 
  Country: US (occurrence: US)
  Receive Date: 20120919
  Receipt Date: 20120919
  Transmission Date: 20130627
  Serious: Yes (Other)
  Sender: FDA-Public Use
  Company Number: US-MERCK-1209USA006053

PATIENT
  Age: 34 Year
  Sex: Male

DRUGS (1)
  1. SAPHRIS [Suspect]
     Route: 048

REACTIONS (5)
  - Paraesthesia [Unknown]
  - Oedema peripheral [Unknown]
  - Arthralgia [Unknown]
  - Pain in extremity [Unknown]
  - Abasia [Unknown]
